FAERS Safety Report 14261969 (Version 2)
Quarter: 2018Q1

REPORT INFORMATION
  Report Type: Spontaneous
  Country: IT (occurrence: IT)
  Receive Date: 20171208
  Receipt Date: 20180301
  Transmission Date: 20180508
  Serious: Yes (Hospitalization)
  Sender: FDA-Public Use
  Company Number: IT-AUROBINDO-AUR-APL-2017-44807

PATIENT
  Age: 33 Week
  Sex: Female
  Weight: 1.97 kg

DRUGS (8)
  1. DICLOFENAC SODIUM. [Suspect]
     Active Substance: DICLOFENAC SODIUM
     Indication: PRODUCT USED FOR UNKNOWN INDICATION
     Dosage: 75 MG, QD
     Route: 064
  2. PARACETAMOL [Suspect]
     Active Substance: ACETAMINOPHEN
     Dosage: MATERNAL DOSE: 1 DF, QD (1 UG/LITRE)
     Route: 064
  3. NIMESULIDE [Suspect]
     Active Substance: NIMESULIDE
     Indication: PRODUCT USED FOR UNKNOWN INDICATION
     Dosage: 100 MG, UNK
     Route: 064
  4. NIMESULIDE [Suspect]
     Active Substance: NIMESULIDE
     Dosage: MATERNAL DOSE: 1 DF, QD (1 UG/LITRE)
     Route: 064
  5. PARACETAMOL [Suspect]
     Active Substance: ACETAMINOPHEN
     Indication: SCIATICA
     Route: 065
  6. PARACETAMOL [Suspect]
     Active Substance: ACETAMINOPHEN
     Indication: PRODUCT USED FOR UNKNOWN INDICATION
     Dosage: 1 DF, QD
     Route: 064
  7. NIMESULIDE [Suspect]
     Active Substance: NIMESULIDE
     Indication: SCIATICA
     Route: 065
  8. DICLOFENAC [Suspect]
     Active Substance: DICLOFENAC
     Indication: SCIATICA
     Route: 065

REACTIONS (12)
  - Premature baby [Unknown]
  - Renal failure neonatal [Recovered/Resolved]
  - Bradycardia neonatal [Recovered/Resolved]
  - Cyanosis neonatal [Recovered/Resolved]
  - Neonatal respiratory acidosis [Recovered/Resolved]
  - Neonatal respiratory distress [Unknown]
  - Renal failure [Unknown]
  - Neonatal respiratory distress syndrome [Recovered/Resolved]
  - Bradycardia [Unknown]
  - Ductus arteriosus stenosis foetal [Recovered/Resolved]
  - Foetal exposure during pregnancy [Unknown]
  - Cyanosis [Unknown]
